FAERS Safety Report 10910022 (Version 1)
Quarter: 2015Q1

REPORT INFORMATION
  Report Type: Spontaneous
  Country: US (occurrence: US)
  Receive Date: 20150312
  Receipt Date: 20150312
  Transmission Date: 20150721
  Serious: No
  Sender: FDA-Public Use
  Company Number: US-SA-2014SA140516

PATIENT
  Age: 93 Year
  Sex: Female

DRUGS (1)
  1. NASACORT ALLERGY 24HR [Suspect]
     Active Substance: TRIAMCINOLONE ACETONIDE
     Indication: RHINORRHOEA
     Dosage: STARTED COUPLE OF WEEKS BACK, DOSE 60 SPRAYS
     Route: 045
     Dates: start: 2014

REACTIONS (1)
  - Pruritus [Unknown]
